FAERS Safety Report 16660746 (Version 1)
Quarter: 2019Q3

REPORT INFORMATION
  Report Type: Spontaneous
  Country: GB (occurrence: GB)
  Receive Date: 20190801
  Receipt Date: 20190801
  Transmission Date: 20191004
  Serious: Yes (Hospitalization, Disabling, Other)
  Sender: FDA-Public Use
  Company Number: None

PATIENT
  Age: 40 Year
  Sex: Male

DRUGS (1)
  1. ELOCON [Suspect]
     Active Substance: MOMETASONE FUROATE
     Indication: ECZEMA
     Route: 061
     Dates: start: 20020101, end: 20110111

REACTIONS (7)
  - Pruritus [None]
  - Skin erosion [None]
  - Drug abuse [None]
  - Dependence [None]
  - Bedridden [None]
  - Steroid withdrawal syndrome [None]
  - Skin weeping [None]

NARRATIVE: CASE EVENT DATE: 20120206
